FAERS Safety Report 6146743-3 (Version None)
Quarter: 2009Q2

REPORT INFORMATION
  Report Type: 
  Country: None (occurrence: None)
  Receive Date: 20090407
  Receipt Date: 20090331
  Transmission Date: 20091009
  Serious: Yes (Other)
  Sender: FDA-Public Use
  Company Number: US-JNJFOC-20090400789

PATIENT
  Sex: Female
  Weight: 52.16 kg

DRUGS (4)
  1. TYLENOL COLD HEAD CONGESTION DAYTIME COOL BURST [Suspect]
     Indication: NASOPHARYNGITIS
  2. TYLENOL COLD HEAD CONGESTION NIGHTTIME COOL BURST [Suspect]
     Indication: NASOPHARYNGITIS
  3. ZARONTIN [Concomitant]
     Indication: EPILEPSY
  4. ADVAIR HFA [Concomitant]
     Indication: ASTHMA

REACTIONS (6)
  - DISTURBANCE IN ATTENTION [None]
  - DYSPNOEA [None]
  - MYDRIASIS [None]
  - PETIT MAL EPILEPSY [None]
  - SOMNOLENCE [None]
  - VISUAL IMPAIRMENT [None]
